FAERS Safety Report 9360402 (Version 1)
Quarter: 2013Q2

REPORT INFORMATION
  Report Type: Spontaneous
  Country: US (occurrence: None)
  Receive Date: 20130620
  Receipt Date: 20130620
  Transmission Date: 20140414
  Serious: Yes (Other)
  Sender: FDA-Public Use
  Company Number: None

PATIENT
  Age: 38 Year
  Sex: Female
  Weight: 88 kg

DRUGS (2)
  1. TRINESSA [Suspect]
     Indication: MENOPAUSE
     Route: 048
     Dates: start: 20100503
  2. LOESTRIN [Suspect]
     Route: 048
     Dates: start: 20100625

REACTIONS (3)
  - Nausea [None]
  - Vomiting [None]
  - Haemorrhage [None]
